FAERS Safety Report 17049736 (Version 1)
Quarter: 2019Q4

REPORT INFORMATION
  Report Type: Spontaneous
  Country: CA (occurrence: CA)
  Receive Date: 20191119
  Receipt Date: 20191119
  Transmission Date: 20200122
  Serious: Yes (Other)
  Sender: FDA-Public Use
  Company Number: CA-SA-2019SA194740

PATIENT
  Age: 70 Year
  Sex: Male
  Weight: 113 kg

DRUGS (1)
  1. FABRAZYME [Suspect]
     Active Substance: AGALSIDASE BETA
     Dosage: UNK UNK, QOW
     Route: 041
     Dates: start: 20180216, end: 20190627

REACTIONS (1)
  - Hypothermia [Unknown]

NARRATIVE: CASE EVENT DATE: 20180216
